FAERS Safety Report 24000058 (Version 2)
Quarter: 2024Q3

REPORT INFORMATION
  Report Type: Spontaneous
  Country: US (occurrence: US)
  Receive Date: 20240621
  Receipt Date: 20240702
  Transmission Date: 20241016
  Serious: No
  Sender: ELI LILLY AND CO
  Company Number: US-ELI_LILLY_AND_COMPANY-US202406013603

PATIENT
  Age: 18 Year
  Sex: Male

DRUGS (2)
  1. TALTZ [Suspect]
     Active Substance: IXEKIZUMAB
     Indication: Product used for unknown indication
     Dosage: 80 MG, OTHER (EVERY 28 DAYS)
     Route: 065
     Dates: end: 20240522
  2. TALTZ [Suspect]
     Active Substance: IXEKIZUMAB
     Indication: Product used for unknown indication
     Dosage: 80 MG, OTHER (EVERY 28 DAYS)
     Route: 065
     Dates: end: 20240522

REACTIONS (2)
  - Drug ineffective [Unknown]
  - Psoriasis [Unknown]
